FAERS Safety Report 23199501 (Version 2)
Quarter: 2023Q4

REPORT INFORMATION
  Report Type: Other
  Country: US (occurrence: US)
  Receive Date: 20231117
  Receipt Date: 20231211
  Transmission Date: 20240110
  Serious: Yes (Other)
  Sender: FDA-Public Use
  Company Number: US-Stemline Therapeutics, Inc.-2023ST001381

PATIENT
  Age: 75 Year
  Sex: Female
  Weight: 61.29 kg

DRUGS (1)
  1. ORSERDU [Suspect]
     Active Substance: ELACESTRANT
     Indication: Product used for unknown indication
     Route: 048
     Dates: start: 20230510

REACTIONS (6)
  - Weight decreased [Unknown]
  - Alopecia [Not Recovered/Not Resolved]
  - Dysphagia [Unknown]
  - Throat irritation [Unknown]
  - Vomiting [Unknown]
  - Product dose omission issue [Unknown]
